FAERS Safety Report 23579346 (Version 1)
Quarter: 2024Q1

REPORT INFORMATION
  Report Type: Spontaneous
  Country: GB (occurrence: GB)
  Receive Date: 20240229
  Receipt Date: 20240229
  Transmission Date: 20240409
  Serious: Yes (Disabling)
  Sender: FDA-Public Use
  Company Number: None

PATIENT
  Age: 57 Year
  Sex: Male
  Weight: 102 kg

DRUGS (11)
  1. ROSUVASTATIN CALCIUM [Suspect]
     Active Substance: ROSUVASTATIN CALCIUM
     Indication: Blood cholesterol increased
     Dates: start: 20231129, end: 20240118
  2. NOVORAPID [Concomitant]
     Active Substance: INSULIN ASPART
     Dosage: USE AS DIRECTED. FAST, SHORT ACTING INSULIN FOR...
     Dates: start: 20230619
  3. RAMIPRIL [Concomitant]
     Active Substance: RAMIPRIL
     Dosage: TO REDUCE B...
     Dates: start: 20230605
  4. INSULIN GLARGINE [Concomitant]
     Active Substance: INSULIN GLARGINE
     Dosage: USE AS DIRECTED
     Dates: start: 20230612
  5. ASPIRIN [Concomitant]
     Active Substance: ASPIRIN
     Dates: start: 20190502
  6. ATORVASTATIN [Concomitant]
     Active Substance: ATORVASTATIN
     Dates: start: 20230803
  7. BISOPROLOL [Concomitant]
     Active Substance: BISOPROLOL\BISOPROLOL FUMARATE
     Dates: start: 20200302
  8. COCODAMOL [Concomitant]
     Active Substance: ACETAMINOPHEN\CODEINE PHOSPHATE
     Dosage: TAKE 1 OR 2
     Dates: start: 20211210
  9. GABAPENTIN [Concomitant]
     Active Substance: GABAPENTIN
     Dosage: TITRATE DOSE FROM ON ON DAY ONE 1 TWICE DAILY O...
     Dates: start: 20230612
  10. NITROGLYCERIN [Concomitant]
     Active Substance: NITROGLYCERIN
     Dosage: USE ONE TO TWO SPRAYS UNDER THE TONGUE
     Route: 060
     Dates: start: 20190502
  11. METFORMIN [Concomitant]
     Active Substance: METFORMIN HYDROCHLORIDE
     Dosage: TITRATE UP TO FULL DOSE OF 2 TABLETS TWICE DAILY
     Dates: start: 20201009

REACTIONS (2)
  - Abdominal pain [Recovered/Resolved]
  - Blood glucose fluctuation [Unknown]
